FAERS Safety Report 9646111 (Version 2)
Quarter: 2014Q3

REPORT INFORMATION
  Report Type: Spontaneous
  Country: US (occurrence: US)
  Receive Date: 20131025
  Receipt Date: 20140827
  Transmission Date: 20150326
  Serious: Yes (Death, Other)
  Sender: FDA-Public Use
  Company Number: US-BRISTOL-MYERS SQUIBB COMPANY-19576412

PATIENT
  Age: 93 Year
  Sex: Male
  Weight: 77.1 kg

DRUGS (3)
  1. SEROQUEL [Suspect]
     Active Substance: QUETIAPINE FUMARATE
  2. ABILIFY [Suspect]
     Active Substance: ARIPIPRAZOLE
     Dosage: 2. 3 OR 4 TIMES DAILY
  3. ARICEPT [Suspect]
     Active Substance: DONEPEZIL HYDROCHLORIDE

REACTIONS (7)
  - Dehydration [Unknown]
  - Renal failure acute [Fatal]
  - Gait disturbance [Unknown]
  - Insomnia [Unknown]
  - Aspiration [Unknown]
  - Dysphagia [Unknown]
  - Choking [Unknown]
